FAERS Safety Report 7067779-4 (Version None)
Quarter: 2010Q4

REPORT INFORMATION
  Report Type: 
  Country: None (occurrence: None)
  Receive Date: 20101028
  Receipt Date: 20100601
  Transmission Date: 20110411
  Serious: No
  Sender: FDA-Public Use
  Company Number: A0855888A

PATIENT
  Age: 65 Year
  Sex: Male

DRUGS (10)
  1. SEREVENT [Suspect]
     Indication: ASTHMA
     Route: 055
     Dates: start: 19900101
  2. ALBUTEROL [Concomitant]
  3. CLARITIN [Concomitant]
  4. FLUTICASONE NASAL SPRAY [Concomitant]
  5. CALCIUM [Concomitant]
  6. VITAMINS [Concomitant]
  7. FISH OIL [Concomitant]
  8. HYDROCHLOROTHIAZIDE [Concomitant]
  9. LUMIGAN [Concomitant]
  10. DORZOLAMIDE [Concomitant]

REACTIONS (2)
  - DRUG INEFFECTIVE [None]
  - PRODUCT QUALITY ISSUE [None]
